FAERS Safety Report 10556545 (Version 1)
Quarter: 2014Q4

REPORT INFORMATION
  Report Type: Spontaneous
  Country: US (occurrence: US)
  Receive Date: 20141031
  Receipt Date: 20141031
  Transmission Date: 20150529
  Serious: No
  Sender: FDA-Public Use
  Company Number: US-009507513-1410USA013971

PATIENT

DRUGS (2)
  1. KEYTRUDA [Suspect]
     Active Substance: PEMBROLIZUMAB
     Indication: RHABDOMYOSARCOMA
     Dosage: CONCENTRATION: 50 MG; FIRST DOSE
     Route: 042
     Dates: start: 2014
  2. KEYTRUDA [Suspect]
     Active Substance: PEMBROLIZUMAB
     Dosage: CONCENTRATION: 50 MG; SECOND DOSE
     Route: 042
     Dates: start: 201410

REACTIONS (8)
  - Bone pain [Unknown]
  - Off label use [Unknown]
  - Platelet count abnormal [Unknown]
  - Anaemia [Unknown]
  - Adverse event [Unknown]
  - Blood lactate dehydrogenase increased [Unknown]
  - Transfusion [Unknown]
  - Platelet transfusion [Unknown]
